FAERS Safety Report 8305403-0 (Version None)
Quarter: 2012Q2

REPORT INFORMATION
  Report Type: 
  Country: None (occurrence: None)
  Receive Date: 20120423
  Receipt Date: 20120417
  Transmission Date: 20120825
  Serious: Yes (Other)
  Sender: FDA-Public Use
  Company Number: US-BAYER-2012-037625

PATIENT
  Sex: Female

DRUGS (3)
  1. VICODIN [Concomitant]
     Dosage: 3 DF, UNK
     Route: 048
  2. MIGRAINE PILLS [Concomitant]
     Dosage: 2 DF, UNK
     Route: 048
  3. ALEVE (CAPLET) [Suspect]
     Dosage: 8 DF, UNK
     Route: 048

REACTIONS (1)
  - DRUG INEFFECTIVE [None]
